FAERS Safety Report 8794756 (Version 2)
Quarter: 2012Q4

REPORT INFORMATION
  Report Type: Report from Study
  Country: RU (occurrence: RU)
  Receive Date: 20120917
  Receipt Date: 20121001
  Transmission Date: 20130627
  Serious: Yes (Death, Other)
  Sender: FDA-Public Use
  Company Number: PHHY2012RU044339

PATIENT
  Age: 54 None
  Sex: Male

DRUGS (6)
  1. IMATINIB [Suspect]
     Indication: CHRONIC MYELOID LEUKAEMIA
     Dosage: 400 mg, UNK
     Dates: start: 20061208, end: 20080428
  2. IMATINIB [Suspect]
     Dosage: 600 mg, UNK
     Dates: start: 20080429, end: 20120515
  3. IMATINIB [Suspect]
     Dosage: 400 mg, daily
     Dates: start: 20120706
  4. VITAMIN B12 [Concomitant]
  5. RED BLOOD CELLS, CONCENTRATED [Concomitant]
     Dates: start: 20120510
  6. ANTIBIOTICS [Concomitant]
     Indication: ABSCESS
     Dates: start: 20111121

REACTIONS (4)
  - Pancytopenia [Fatal]
  - Pneumonia [Fatal]
  - Haemoglobin decreased [Not Recovered/Not Resolved]
  - No therapeutic response [Not Recovered/Not Resolved]
